FAERS Safety Report 10243621 (Version 1)
Quarter: 2014Q2

REPORT INFORMATION
  Report Type: Spontaneous
  Country: GB (occurrence: None)
  Receive Date: 20140616
  Receipt Date: 20140616
  Transmission Date: 20141212
  Serious: Yes (Death)
  Sender: FDA-Public Use
  Company Number: GB-H14001-14-00051

PATIENT
  Age: 67 Year
  Sex: 0

DRUGS (1)
  1. CO-AMOXICLAV (AUGMENTIN) (UNKNOWN) (AMOXICILLIN SODIUM, CLAVUNATE POTASSIUM) [Suspect]
     Indication: PRODUCT USED FOR UNKNOWN INDICATION

REACTIONS (3)
  - Procedural complication [None]
  - Cardiac arrest [None]
  - Anaphylactic reaction [None]
